FAERS Safety Report 5131588-3 (Version None)
Quarter: 2006Q4

REPORT INFORMATION
  Report Type: 
  Country: None (occurrence: None)
  Receive Date: 20061020
  Receipt Date: 20060810
  Transmission Date: 20070319
  Serious: Yes (Death, Other)
  Sender: FDA-Public Use
  Company Number: PHEH2006US10237

PATIENT
  Age: 57 Year
  Sex: Female

DRUGS (6)
  1. ZOMETA [Suspect]
     Indication: MULTIPLE MYELOMA
     Dosage: 4 MG EVERY 3 MONTHS
     Route: 042
     Dates: start: 20020301, end: 20060201
  2. THALIDOMIDE [Concomitant]
     Indication: MULTIPLE MYELOMA
     Dosage: 40 MG DAYS 1-4 EVERY MONTH
     Dates: start: 20010101
  3. DECADRON [Concomitant]
     Indication: MULTIPLE MYELOMA
     Dosage: 40 MG DAYS 1-4 EVERY MONTH
     Dates: start: 20021201
  4. ALKERAN [Concomitant]
     Indication: MULTIPLE MYELOMA
     Dosage: ONE CYCLE
     Dates: start: 20060201
  5. PREDNISONE TAB [Concomitant]
     Indication: MULTIPLE MYELOMA
     Dosage: ONE CYCLE
     Dates: start: 20060201
  6. EPOGEN [Concomitant]
     Indication: ANAEMIA OF MALIGNANT DISEASE

REACTIONS (9)
  - BONE DISORDER [None]
  - DENTAL CARIES [None]
  - GINGIVAL SWELLING [None]
  - GINGIVITIS [None]
  - IMPAIRED HEALING [None]
  - MALIGNANT NEOPLASM PROGRESSION [None]
  - OSTEONECROSIS [None]
  - PULMONARY HAEMORRHAGE [None]
  - TOOTH EXTRACTION [None]
